FAERS Safety Report 17987975 (Version 1)
Quarter: 2020Q3

REPORT INFORMATION
  Report Type: Spontaneous
  Country: US (occurrence: US)
  Receive Date: 20200706
  Receipt Date: 20200706
  Transmission Date: 20201103
  Serious: Yes (Hospitalization)
  Sender: FDA-Public Use
  Company Number: None

PATIENT
  Age: 21 Year
  Sex: Female
  Weight: 76.5 kg

DRUGS (1)
  1. NEXPLANON [Suspect]
     Active Substance: ETONOGESTREL
     Indication: CONTRACEPTION
     Dosage: ?          QUANTITY:1 ROD IN ARM;OTHER FREQUENCY:ALL THE TIME;?
     Route: 058
     Dates: start: 20170908, end: 20200702

REACTIONS (5)
  - Implantation complication [None]
  - Dysmenorrhoea [None]
  - Pain in extremity [None]
  - Menstruation irregular [None]
  - Hypoaesthesia [None]

NARRATIVE: CASE EVENT DATE: 20200702
